FAERS Safety Report 10498377 (Version 2)
Quarter: 2014Q4

REPORT INFORMATION
  Report Type: Spontaneous
  Country: JP (occurrence: JP)
  Receive Date: 20141006
  Receipt Date: 20141017
  Transmission Date: 20150528
  Serious: Yes (Other)
  Sender: FDA-Public Use
  Company Number: PHHY2014JP129405

PATIENT
  Age: 70 Year
  Sex: Male

DRUGS (2)
  1. ZOMETA [Suspect]
     Active Substance: ZOLEDRONIC ACID
     Indication: PROSTATE CANCER
  2. ZOMETA [Suspect]
     Active Substance: ZOLEDRONIC ACID
     Indication: METASTASES TO BONE
     Route: 041
     Dates: start: 200907

REACTIONS (6)
  - Osteonecrosis of jaw [Recovering/Resolving]
  - Infection [Recovering/Resolving]
  - Pain [Recovering/Resolving]
  - Impaired healing [Recovering/Resolving]
  - Swelling [Recovering/Resolving]
  - Wound dehiscence [Unknown]
